FAERS Safety Report 11395301 (Version 1)
Quarter: 2015Q3

REPORT INFORMATION
  Report Type: Spontaneous
  Country: JP (occurrence: JP)
  Receive Date: 20150819
  Receipt Date: 20150819
  Transmission Date: 20151125
  Serious: Yes (Hospitalization, Other)
  Sender: FDA-Public Use
  Company Number: JP-PFIZER INC-2015231446

PATIENT
  Age: 10 Decade
  Sex: Female
  Weight: 67 kg

DRUGS (19)
  1. LYRICA [Suspect]
     Active Substance: PREGABALIN
     Indication: ARTHRALGIA
     Dosage: 75 MG, 1X/DAY
     Route: 048
     Dates: start: 20131129, end: 20131205
  2. LYRICA [Suspect]
     Active Substance: PREGABALIN
     Dosage: 75 MG, 3X/DAY
     Route: 048
     Dates: start: 20131220, end: 20140508
  3. FEBURIC [Concomitant]
     Active Substance: FEBUXOSTAT
  4. AMARYL [Concomitant]
     Active Substance: GLIMEPIRIDE
  5. LYRICA [Suspect]
     Active Substance: PREGABALIN
     Indication: PAIN IN EXTREMITY
     Dosage: 75 MG, 2X/DAY
     Route: 048
     Dates: start: 20131206, end: 20131219
  6. PURSENNID [Concomitant]
     Active Substance: SENNOSIDES A AND B
  7. REBAMIPIDE [Concomitant]
     Active Substance: REBAMIPIDE
  8. MECOBALAMIN [Concomitant]
     Active Substance: METHYLCOBALAMIN
  9. AVAPRO [Concomitant]
     Active Substance: IRBESARTAN
  10. LYRICA [Suspect]
     Active Substance: PREGABALIN
     Dosage: 75 MG, 1X/DAY
     Route: 048
     Dates: start: 20140509
  11. LIPITOR [Concomitant]
     Active Substance: ATORVASTATIN CALCIUM
  12. FUROSEMIDE. [Concomitant]
     Active Substance: FUROSEMIDE
  13. JANUVIA [Concomitant]
     Active Substance: SITAGLIPTIN PHOSPHATE
  14. TRAZENTA [Concomitant]
     Active Substance: LINAGLIPTIN
  15. SORENTMIN [Concomitant]
     Active Substance: BROTIZOLAM
  16. CELECOX [Concomitant]
     Active Substance: CELECOXIB
  17. PATELL [Concomitant]
  18. BIOFERMIN [Concomitant]
     Active Substance: BACILLUS SUBTILIS\LACTOBACILLUS ACIDOPHILUS\STREPTOCOCCUS FAECAIS
     Route: 048
  19. LAXOBERON [Concomitant]
     Active Substance: SODIUM PICOSULFATE

REACTIONS (8)
  - Back pain [Unknown]
  - Condition aggravated [Unknown]
  - Insomnia [Unknown]
  - Compression fracture [Unknown]
  - Overdose [Unknown]
  - Creatinine renal clearance decreased [Unknown]
  - Somnolence [Not Recovered/Not Resolved]
  - Sleep disorder [Unknown]

NARRATIVE: CASE EVENT DATE: 20140110
